FAERS Safety Report 21462199 (Version 1)
Quarter: 2022Q4

REPORT INFORMATION
  Report Type: Spontaneous
  Country: US (occurrence: US)
  Receive Date: 20221016
  Receipt Date: 20221016
  Transmission Date: 20230113
  Serious: Yes (Death, Other)
  Sender: FDA-Public Use
  Company Number: US-drreddys-LIT/USA/22/0155762

PATIENT
  Age: 1 Year
  Sex: Female

DRUGS (7)
  1. BORTEZOMIB [Suspect]
     Active Substance: BORTEZOMIB
     Indication: Acute lymphocytic leukaemia
  2. DEXAMETHASONE SODIUM PHOSPHATE [Suspect]
     Active Substance: DEXAMETHASONE SODIUM PHOSPHATE
     Indication: Acute lymphocytic leukaemia
  3. SORAFENIB [Suspect]
     Active Substance: SORAFENIB
     Indication: Acute lymphocytic leukaemia
     Dosage: DIVIDED TWICE A DAY
     Route: 048
  4. VORINOSTAT [Suspect]
     Active Substance: VORINOSTAT
     Indication: Acute lymphocytic leukaemia
  5. MITOXANTRONE [Suspect]
     Active Substance: MITOXANTRONE HYDROCHLORIDE
     Indication: Acute lymphocytic leukaemia
  6. PEGASPARGASE [Suspect]
     Active Substance: PEGASPARGASE
     Indication: Acute lymphocytic leukaemia
  7. METHOTREXATE [Suspect]
     Active Substance: METHOTREXATE
     Indication: Acute lymphocytic leukaemia

REACTIONS (3)
  - Candida infection [Fatal]
  - Acute lymphocytic leukaemia [Unknown]
  - Disease progression [Unknown]
